FAERS Safety Report 14738042 (Version 4)
Quarter: 2018Q2

REPORT INFORMATION
  Report Type: Spontaneous
  Country: FR (occurrence: FR)
  Receive Date: 20180409
  Receipt Date: 20180621
  Transmission Date: 20180711
  Serious: Yes (Other)
  Sender: FDA-Public Use
  Company Number: FR-PFIZER INC-2018136967

PATIENT
  Age: 80 Year
  Sex: Female

DRUGS (4)
  1. EFFEXOR LP [Suspect]
     Active Substance: VENLAFAXINE HYDROCHLORIDE
     Indication: SUICIDAL IDEATION
     Dosage: 75 MG, DAILY
     Dates: start: 201804, end: 20180423
  2. EFFEXOR LP [Suspect]
     Active Substance: VENLAFAXINE HYDROCHLORIDE
     Indication: DEPRESSION
  3. IZALGI [Suspect]
     Active Substance: ACETAMINOPHEN\OPIUM
     Indication: PAIN IN EXTREMITY
     Dosage: 3 DF, DAILY
     Route: 048
     Dates: start: 2017, end: 20180423
  4. MYCOSTATIN [Concomitant]
     Active Substance: NYSTATIN
     Indication: FUNGAL INFECTION
     Dosage: 3 DF, DAILY FOR 3 WEEKS
     Dates: end: 20180423

REACTIONS (13)
  - Muscular weakness [Unknown]
  - Abdominal pain [Unknown]
  - Nightmare [Not Recovered/Not Resolved]
  - Diarrhoea [Unknown]
  - Agitation [Unknown]
  - Erysipelas [Unknown]
  - Urinary tract infection [Unknown]
  - Headache [Unknown]
  - Myalgia [Unknown]
  - Pain in extremity [Unknown]
  - Condition aggravated [Unknown]
  - Pruritus [Unknown]
  - Alopecia [Unknown]

NARRATIVE: CASE EVENT DATE: 201804
